FAERS Safety Report 11419760 (Version 1)
Quarter: 2015Q3

REPORT INFORMATION
  Report Type: Spontaneous
  Country: US (occurrence: None)
  Receive Date: 20150825
  Receipt Date: 20150825
  Transmission Date: 20151125
  Serious: Yes (Other)
  Sender: FDA-Public Use
  Company Number: None

PATIENT
  Age: 83 Year
  Sex: Male
  Weight: 63.5 kg

DRUGS (11)
  1. TAMSULOSIN [Concomitant]
     Active Substance: TAMSULOSIN
  2. AMIODARONE [Concomitant]
     Active Substance: AMIODARONE
  3. TAMSULOSIN [Suspect]
     Active Substance: TAMSULOSIN
     Indication: URINE FLOW DECREASED
     Dates: start: 2015
  4. CLOBETASOL PROPRIONATE [Concomitant]
     Active Substance: CLOBETASOL PROPIONATE
  5. HEMORIL-30 [Concomitant]
  6. LISINOPRIL. [Concomitant]
     Active Substance: LISINOPRIL
  7. FISH OIL [Concomitant]
     Active Substance: FISH OIL
  8. CARVEDILOL. [Concomitant]
     Active Substance: CARVEDILOL
  9. PRAVASTATIN [Concomitant]
     Active Substance: PRAVASTATIN\PRAVASTATIN SODIUM
  10. KETOCONAZOLE. [Concomitant]
     Active Substance: KETOCONAZOLE
  11. 81 ASPIRIN [Concomitant]

REACTIONS (3)
  - Drug effect decreased [None]
  - Urine flow decreased [None]
  - Dry mouth [None]
